FAERS Safety Report 11159317 (Version 2)
Quarter: 2015Q3

REPORT INFORMATION
  Report Type: Spontaneous
  Country: US (occurrence: US)
  Receive Date: 20150603
  Receipt Date: 20150714
  Transmission Date: 20151125
  Serious: Yes (Death)
  Sender: FDA-Public Use
  Company Number: US-BIOMARINAP-US-2015-106528

PATIENT
  Age: 12 Year
  Sex: Female

DRUGS (1)
  1. ALDURAZYME [Suspect]
     Active Substance: LARONIDASE
     Indication: GAUCHER^S DISEASE
     Dosage: 11.6 MG, QW
     Route: 042
     Dates: start: 20120716, end: 20150506

REACTIONS (1)
  - Death [Fatal]

NARRATIVE: CASE EVENT DATE: 20150511
